FAERS Safety Report 7499608-9 (Version None)
Quarter: 2011Q2

REPORT INFORMATION
  Report Type: 
  Country: None (occurrence: None)
  Receive Date: 20110506
  Receipt Date: 20110425
  Transmission Date: 20111010
  Serious: Yes (Other)
  Sender: FDA-Public Use
  Company Number: 2011027903

PATIENT
  Sex: Female
  Weight: 80.7403 kg

DRUGS (25)
  1. PRIVIGEN [Suspect]
  2. PRIVIGEN [Suspect]
  3. GEODON [Concomitant]
  4. OBETROL [Concomitant]
  5. CALCIUM CITRATE (CALCIUM CITRATE) [Concomitant]
  6. PRIVIGEN [Suspect]
  7. BENADRYL [Concomitant]
  8. PRIVIGEN [Suspect]
  9. PRIVIGEN [Suspect]
  10. NEXIUM [Concomitant]
  11. ROZEREM (MELATONNI) [Concomitant]
  12. PRIVIGEN [Suspect]
  13. SINGULAIR [Concomitant]
  14. CLONAZEPAM [Concomitant]
  15. PRIVIGEN [Suspect]
  16. PRIVIGEN [Suspect]
  17. BACLOFEN [Concomitant]
  18. TOPAMAX [Concomitant]
  19. FISH OIL (FISH OIL) [Concomitant]
  20. CYMBALTA [Concomitant]
  21. PRIVIGEN [Suspect]
  22. PRIVIGEN [Suspect]
     Indication: IMMUNODEFICIENCY
     Dosage: SEE IMAGE
     Route: 042
     Dates: start: 20110405, end: 20110405
  23. PRIVIGEN [Suspect]
     Indication: IMMUNODEFICIENCY
     Dosage: SEE IMAGE
     Route: 042
     Dates: start: 20100601
  24. PRIVIGEN [Suspect]
  25. ROBAXISAL (ROBAXISAL) [Concomitant]

REACTIONS (1)
  - RENAL FAILURE CHRONIC [None]
